FAERS Safety Report 6373265-7 (Version None)
Quarter: 2009Q3

REPORT INFORMATION
  Report Type: 
  Country: None (occurrence: None)
  Receive Date: 20090924
  Receipt Date: 20090918
  Transmission Date: 20100115
  Serious: Yes (Other)
  Sender: FDA-Public Use
  Company Number: BR-JNJFOC-20090905892

PATIENT
  Age: 42 Year
  Sex: Female
  Weight: 46 kg

DRUGS (3)
  1. SPORANOX [Suspect]
     Route: 048
     Dates: start: 20080801, end: 20090916
  2. SPORANOX [Suspect]
     Indication: CANDIDIASIS
     Route: 048
     Dates: start: 20080801, end: 20090916
  3. PAROXETINE HCL [Concomitant]
     Indication: ANXIETY
     Route: 065
     Dates: start: 20090501

REACTIONS (5)
  - DECREASED IMMUNE RESPONSIVENESS [None]
  - DIZZINESS [None]
  - NAUSEA [None]
  - PNEUMONIA [None]
  - TREATMENT NONCOMPLIANCE [None]
